FAERS Safety Report 9067456 (Version 1)
Quarter: 2013Q1

REPORT INFORMATION
  Report Type: Spontaneous
  Country: PH (occurrence: PH)
  Receive Date: 20130129
  Receipt Date: 20130129
  Transmission Date: 20140127
  Serious: Yes (Hospitalization)
  Sender: FDA-Public Use
  Company Number: PHHY2013PH007450

PATIENT
  Sex: Female

DRUGS (1)
  1. AFINITOR [Suspect]
     Indication: BREAST CANCER STAGE IV
     Dosage: 5 MG, DAILY
     Route: 048
     Dates: start: 20120907, end: 201212

REACTIONS (6)
  - Malnutrition [Unknown]
  - Oral pain [Unknown]
  - Dysphagia [Unknown]
  - Blood glucose increased [Unknown]
  - Blood pressure increased [Unknown]
  - Blood creatine increased [Unknown]
